FAERS Safety Report 5910695-9 (Version None)
Quarter: 2008Q4

REPORT INFORMATION
  Report Type: 
  Country: None (occurrence: None)
  Receive Date: 20081006
  Receipt Date: 20081006
  Transmission Date: 20090506
  Serious: Yes (Hospitalization)
  Sender: FDA-Public Use
  Company Number: None

PATIENT
  Age: 72 Year
  Sex: Female

DRUGS (8)
  1. SORAFENIB [Suspect]
     Dosage: 400MG BID PO
     Route: 048
  2. NORVASC [Concomitant]
  3. PRILOSEC [Concomitant]
  4. BENICAR [Concomitant]
  5. LEXAPRO [Concomitant]
  6. METOPROLOL TARTRATE [Concomitant]
  7. ATIVAN [Concomitant]
  8. IRON SULFATETHIAMIN COMPOUND TAB [Concomitant]

REACTIONS (3)
  - DIARRHOEA [None]
  - HYPOPHAGIA [None]
  - RENAL FAILURE ACUTE [None]
